FAERS Safety Report 10217607 (Version 1)
Quarter: 2014Q2

REPORT INFORMATION
  Report Type: Spontaneous
  Country: US (occurrence: US)
  Receive Date: 20140604
  Receipt Date: 20140604
  Transmission Date: 20141212
  Serious: Yes (Death, Other)
  Sender: FDA-Public Use
  Company Number: US-GILEAD-2014-0104244

PATIENT
  Age: 63 Year
  Sex: Female

DRUGS (14)
  1. LETAIRIS [Suspect]
     Indication: PRODUCT USED FOR UNKNOWN INDICATION
     Route: 065
     Dates: start: 20121016, end: 20140528
  2. TYVASO [Concomitant]
  3. SILDENAFIL [Concomitant]
  4. COUMADIN                           /00014802/ [Concomitant]
  5. PREDNISONE [Concomitant]
  6. PEPCID                             /00305201/ [Concomitant]
  7. LASIX                              /00032601/ [Concomitant]
  8. CALCITROL                          /00508501/ [Concomitant]
  9. METOLAZONE [Concomitant]
  10. LISINOPRIL [Concomitant]
  11. GLIPIZIDE [Concomitant]
  12. NEURONTIN [Concomitant]
  13. JANUVIA [Concomitant]
  14. NIFEDIPINE [Concomitant]

REACTIONS (1)
  - Death [Fatal]
